FAERS Safety Report 25818020 (Version 1)
Quarter: 2025Q3

REPORT INFORMATION
  Report Type: Spontaneous
  Country: CA (occurrence: None)
  Receive Date: 20250918
  Receipt Date: 20250918
  Transmission Date: 20251021
  Serious: Yes (Other)
  Sender: FDA-CTU
  Company Number: None

PATIENT
  Age: 50 Year
  Sex: Female
  Weight: 72 kg

DRUGS (7)
  1. MIRALAX [Suspect]
     Active Substance: POLYETHYLENE GLYCOL 3350
     Indication: Constipation
     Dosage: OTHER QUANTITY : 1 CAPFUL;?FREQUENCY : DAILY;?
     Route: 048
     Dates: start: 20250917, end: 20250917
  2. Armourthyroid [Concomitant]
  3. METFORMIN [Concomitant]
     Active Substance: METFORMIN HYDROCHLORIDE
  4. HERBALS\TURMERIC [Concomitant]
     Active Substance: HERBALS\TURMERIC
  5. VITAMIN D [Concomitant]
     Active Substance: VITAMIN D NOS
  6. VITAMIN K [Concomitant]
     Active Substance: PHYTONADIONE
  7. IRON [Concomitant]
     Active Substance: IRON

REACTIONS (3)
  - Tremor [None]
  - Chills [None]
  - Bruxism [None]

NARRATIVE: CASE EVENT DATE: 20250917
